FAERS Safety Report 10185294 (Version 1)
Quarter: 2014Q2

REPORT INFORMATION
  Report Type: Spontaneous
  Country: US (occurrence: US)
  Receive Date: 20140521
  Receipt Date: 20140521
  Transmission Date: 20141212
  Serious: No
  Sender: FDA-Public Use
  Company Number: US-PFIZER INC-2014136649

PATIENT
  Age: 39 Year
  Sex: Male
  Weight: 111 kg

DRUGS (2)
  1. ADVIL [Suspect]
     Dosage: THREE TABLETS EVERY FOUR HOURS IN A DAY
     Route: 048
     Dates: start: 201405, end: 20140516
  2. DEPAKOTE [Concomitant]
     Indication: CEREBROVASCULAR ACCIDENT
     Dosage: 1000MG TWO TIMES A DAY

REACTIONS (3)
  - Overdose [Unknown]
  - Abdominal pain upper [Not Recovered/Not Resolved]
  - Insomnia [Not Recovered/Not Resolved]
